FAERS Safety Report 9939813 (Version 1)
Quarter: 2014Q1

REPORT INFORMATION
  Report Type: Report from Study
  Country: US (occurrence: US)
  Receive Date: 20140303
  Receipt Date: 20140303
  Transmission Date: 20141002
  Serious: No
  Sender: FDA-Public Use
  Company Number: US-ABBVIE-13P-163-1036315-00

PATIENT
  Age: 65 Year
  Sex: Female

DRUGS (7)
  1. HUMIRA [Suspect]
     Indication: RHEUMATOID ARTHRITIS
     Dates: start: 20130107
  2. TRAMADOL [Concomitant]
     Indication: PAIN
     Dosage: MADE HER ^TOO SLEEPY^
  3. PREDNISONE [Concomitant]
     Indication: PRODUCT USED FOR UNKNOWN INDICATION
     Dosage: DAILY
     Dates: start: 201208
  4. PREDNISONE [Concomitant]
     Dosage: DAILY
  5. PREDNISONE [Concomitant]
     Dosage: DAILY, FOR A COUPLE MONTHS
  6. METHOTREXATE [Concomitant]
     Indication: PRODUCT USED FOR UNKNOWN INDICATION
     Dosage: 6 PILLS WEEKLY
  7. MELATONIN [Concomitant]
     Indication: PRODUCT USED FOR UNKNOWN INDICATION
     Dosage: AT NIGHT

REACTIONS (2)
  - Weight loss poor [Not Recovered/Not Resolved]
  - Insomnia [Not Recovered/Not Resolved]
